FAERS Safety Report 21771100 (Version 1)
Quarter: 2022Q4

REPORT INFORMATION
  Report Type: Spontaneous
  Country: US (occurrence: None)
  Receive Date: 20221222
  Receipt Date: 20221222
  Transmission Date: 20230113
  Serious: No
  Sender: FDA-Public Use
  Company Number: None

PATIENT
  Sex: Female

DRUGS (1)
  1. CAPECITABINE [Suspect]
     Active Substance: CAPECITABINE
     Dosage: 1500 MG BID ORAL?
     Route: 048

REACTIONS (5)
  - Intentional product use issue [None]
  - SARS-CoV-2 test positive [None]
  - Adverse drug reaction [None]
  - Stomatitis [None]
  - Neuropathy peripheral [None]
